FAERS Safety Report 8057946-5 (Version None)
Quarter: 2012Q1

REPORT INFORMATION
  Report Type: 
  Country: None (occurrence: None)
  Receive Date: 20120120
  Receipt Date: 20120117
  Transmission Date: 20120608
  Serious: No
  Sender: FDA-Public Use
  Company Number: US-PFIZER INC-2011284907

PATIENT
  Sex: Male
  Weight: 86.621 kg

DRUGS (10)
  1. LYRICA [Suspect]
     Indication: NEURALGIA
     Dosage: 150 MG, UNK
     Route: 048
     Dates: start: 20050101
  2. LYRICA [Suspect]
     Indication: CONVULSION
  3. TIZANIDINE [Concomitant]
     Indication: MUSCLE SPASMS
     Dosage: UNK
  4. LYRICA [Suspect]
     Indication: PAIN
  5. RANITIDINE [Concomitant]
     Indication: GASTROOESOPHAGEAL REFLUX DISEASE
     Dosage: UNK
  6. DOMPERIDONE [Concomitant]
     Dosage: UNK
  7. LYRICA [Suspect]
     Indication: PARAESTHESIA
     Dosage: 225 MG, 3X/DAY
     Route: 048
     Dates: start: 20060101
  8. PROTONIX [Concomitant]
     Indication: GASTROOESOPHAGEAL REFLUX DISEASE
     Dosage: UNK
  9. LYRICA [Suspect]
     Indication: NEUROPATHY PERIPHERAL
  10. LYRICA [Suspect]
     Indication: FIBROMYALGIA

REACTIONS (4)
  - HYPERSENSITIVITY [None]
  - DRUG INEFFECTIVE [None]
  - PAIN [None]
  - DYSGEUSIA [None]
